FAERS Safety Report 13537666 (Version 1)
Quarter: 2017Q2

REPORT INFORMATION
  Report Type: Report from Study
  Country: None (occurrence: US)
  Receive Date: 20170511
  Receipt Date: 20170511
  Transmission Date: 20170830
  Serious: Yes (Hospitalization, Other)
  Sender: FDA-Public Use
  Company Number: US-ABBVIE-17P-163-1965506-00

PATIENT
  Age: 54 Year
  Sex: Female

DRUGS (1)
  1. VENCLEXTA [Suspect]
     Active Substance: VENETOCLAX
     Indication: ACUTE MYELOID LEUKAEMIA
     Route: 048

REACTIONS (44)
  - Pyrexia [Unknown]
  - Bacterial sepsis [Unknown]
  - Abscess [Unknown]
  - Mucosal dryness [Unknown]
  - Computerised tomogram thorax abnormal [Unknown]
  - Rash maculo-papular [Unknown]
  - Red blood cell count decreased [Unknown]
  - Escherichia sepsis [Unknown]
  - Pancytopenia [Unknown]
  - Febrile neutropenia [Unknown]
  - Headache [Recovered/Resolved]
  - Tooth infection [Unknown]
  - Contusion [Unknown]
  - Chills [Unknown]
  - Cytomegalovirus infection [Unknown]
  - Pseudomonas infection [Unknown]
  - Asthenia [Unknown]
  - Headache [Unknown]
  - Oedema peripheral [Unknown]
  - Fatigue [Unknown]
  - Headache [Unknown]
  - Musculoskeletal pain [Unknown]
  - Platelet count decreased [Unknown]
  - Infusion site thrombosis [Unknown]
  - Nausea [Unknown]
  - Breath sounds abnormal [Unknown]
  - Thrombocytopenia [Unknown]
  - Disease progression [Unknown]
  - Contusion [Unknown]
  - Tachycardia [Unknown]
  - Klebsiella infection [Unknown]
  - Escherichia infection [Unknown]
  - Gait disturbance [Unknown]
  - Drug eruption [Recovering/Resolving]
  - Oedema [Unknown]
  - Oxygen therapy [Unknown]
  - Mental status changes [Unknown]
  - Swelling face [Unknown]
  - Urinary incontinence [Unknown]
  - Graft versus host disease [Unknown]
  - White blood cell count increased [Unknown]
  - Cytomegalovirus infection [Recovering/Resolving]
  - Swelling [Unknown]
  - Petechiae [Unknown]

NARRATIVE: CASE EVENT DATE: 20170425
